FAERS Safety Report 11238394 (Version 5)
Quarter: 2016Q1

REPORT INFORMATION
  Report Type: Spontaneous
  Country: DE (occurrence: DE)
  Receive Date: 20150704
  Receipt Date: 20160321
  Transmission Date: 20160525
  Serious: Yes (Death, Life-Threatening, Hospitalization, Disabling, Other)
  Sender: FDA-Public Use
  Company Number: DE-CELGENE-DEU-2015066593

PATIENT
  Age: 72 Year
  Sex: Female
  Weight: 65 kg

DRUGS (10)
  1. PREDNISOLONE. [Concomitant]
     Active Substance: PREDNISOLONE
     Route: 065
     Dates: start: 2015
  2. DEXAMETHASONE. [Concomitant]
     Active Substance: DEXAMETHASONE
     Route: 065
     Dates: start: 201011, end: 201110
  3. DEXAMETHASONE. [Concomitant]
     Active Substance: DEXAMETHASONE
     Route: 065
     Dates: start: 201411
  4. DEXAMETHASONE. [Concomitant]
     Active Substance: DEXAMETHASONE
     Route: 065
     Dates: start: 201303, end: 201405
  5. DEXAMETHASONE. [Concomitant]
     Active Substance: DEXAMETHASONE
     Route: 065
     Dates: start: 201305, end: 201405
  6. BENDAMUSTINE [Concomitant]
     Active Substance: BENDAMUSTINE
     Indication: PLASMA CELL MYELOMA
     Route: 065
     Dates: start: 201304
  7. POMALIDOMIDE [Suspect]
     Active Substance: POMALIDOMIDE
     Indication: PLASMA CELL MYELOMA
     Route: 048
     Dates: start: 201411
  8. DEXAMETHASONE. [Concomitant]
     Active Substance: DEXAMETHASONE
     Indication: PLASMA CELL MYELOMA
     Route: 065
     Dates: start: 200804, end: 200812
  9. BENDAMUSTINE [Concomitant]
     Active Substance: BENDAMUSTINE
     Route: 065
     Dates: start: 2015
  10. PREDNISOLONE. [Concomitant]
     Active Substance: PREDNISOLONE
     Indication: PLASMA CELL MYELOMA
     Route: 065
     Dates: start: 201304

REACTIONS (28)
  - Delirium [Fatal]
  - Atrial fibrillation [Recovered/Resolved]
  - General physical health deterioration [Not Recovered/Not Resolved]
  - Tachyarrhythmia [Recovered/Resolved]
  - Sleep disorder [Not Recovered/Not Resolved]
  - Vomiting [Unknown]
  - Hypercalcaemia [Not Recovered/Not Resolved]
  - Hepatic mass [Not Recovered/Not Resolved]
  - Infection [Not Recovered/Not Resolved]
  - Asthenia [Not Recovered/Not Resolved]
  - Plasma cell myeloma [Fatal]
  - Troponin [Recovered/Resolved]
  - Transaminases increased [Not Recovered/Not Resolved]
  - Weight decreased [Not Recovered/Not Resolved]
  - Tumour lysis syndrome [Recovered/Resolved]
  - Chest pain [Recovered/Resolved]
  - C-reactive protein increased [Not Recovered/Not Resolved]
  - Traumatic haematoma [Not Recovered/Not Resolved]
  - Mental disorder due to a general medical condition [Fatal]
  - Bone pain [Fatal]
  - Urinary tract infection [Recovered/Resolved]
  - Fatigue [Not Recovered/Not Resolved]
  - Epistaxis [Recovered/Resolved]
  - Night sweats [Not Recovered/Not Resolved]
  - Hepatotoxicity [Fatal]
  - Blood lactate dehydrogenase increased [Not Recovered/Not Resolved]
  - Dizziness [Recovered/Resolved]
  - Nausea [Recovered/Resolved]

NARRATIVE: CASE EVENT DATE: 201412
